FAERS Safety Report 6133460-9 (Version None)
Quarter: 2009Q1

REPORT INFORMATION
  Report Type: 
  Country: None (occurrence: None)
  Receive Date: 20090326
  Receipt Date: 20090326
  Transmission Date: 20090719
  Serious: Yes (Death, Hospitalization)
  Sender: FDA-Public Use
  Company Number: PHHO2006CH04032

PATIENT
  Sex: Female
  Weight: 38 kg

DRUGS (13)
  1. CGS 20267 T30748+ [Suspect]
     Indication: BREAST CANCER
     Dosage: 2.5 MG, QD
     Route: 048
     Dates: start: 20001205
  2. TRAMADOL HCL [Concomitant]
  3. DAFALGAN [Concomitant]
  4. CALCIMAGON [Concomitant]
  5. COVERSUM [Concomitant]
  6. TOREM [Concomitant]
  7. FOSAMAX [Concomitant]
  8. DIAMICRON [Concomitant]
  9. BISOPROLOL FUMARATE [Concomitant]
  10. STILNOX [Concomitant]
  11. NEXIUM [Concomitant]
  12. CIPROFLOXACIN HCL [Concomitant]
  13. FRAGMIN [Concomitant]

REACTIONS (3)
  - CARDIAC ARREST [None]
  - FALL [None]
  - FEMORAL NECK FRACTURE [None]
